FAERS Safety Report 4848172-9 (Version None)
Quarter: 2005Q4

REPORT INFORMATION
  Report Type: 
  Country: None (occurrence: None)
  Receive Date: 20051208
  Receipt Date: 20051128
  Transmission Date: 20060501
  Serious: Yes (Other)
  Sender: FDA-Public Use
  Company Number: KR-SANOFI-SYNTHELABO-A01200508212

PATIENT
  Sex: Female

DRUGS (3)
  1. STILNOX [Suspect]
     Indication: INSOMNIA
     Route: 048
  2. MIRTAZAPINE [Concomitant]
     Indication: DEPRESSION
     Dosage: UNK
     Route: 065
  3. ALCOHOL [Concomitant]
     Indication: DRUG USE FOR UNKNOWN INDICATION
     Dosage: UNK
     Route: 048

REACTIONS (2)
  - ILL-DEFINED DISORDER [None]
  - PRESCRIBED OVERDOSE [None]
